FAERS Safety Report 19716783 (Version 2)
Quarter: 2021Q4

REPORT INFORMATION
  Report Type: Report from Study
  Country: US (occurrence: US)
  Receive Date: 20210818
  Receipt Date: 20211011
  Transmission Date: 20220303
  Serious: No
  Sender: FDA-Public Use
  Company Number: US-SA-2018SA214242

PATIENT
  Age: 65 Year
  Sex: Male

DRUGS (2)
  1. VANDETANIB [Suspect]
     Active Substance: VANDETANIB
     Indication: Thyroid cancer
     Dosage: 300 MG, QD
     Route: 048
     Dates: start: 20161027
  2. VANDETANIB [Suspect]
     Active Substance: VANDETANIB
     Dosage: 300 MG, QD
     Route: 048
     Dates: start: 201610

REACTIONS (7)
  - Seasonal allergy [Unknown]
  - Somnolence [Unknown]
  - Pain [Unknown]
  - Alopecia [Unknown]
  - Headache [Unknown]
  - Product dose omission issue [Unknown]
  - Therapeutic product effect increased [Unknown]
